FAERS Safety Report 15471451 (Version 1)
Quarter: 2018Q4

REPORT INFORMATION
  Report Type: Spontaneous
  Country: US (occurrence: US)
  Receive Date: 20181007
  Receipt Date: 20181007
  Transmission Date: 20190205
  Serious: No
  Sender: FDA-Public Use
  Company Number: US-JNJFOC-20180804648

PATIENT
  Age: 86 Year
  Sex: Male

DRUGS (9)
  1. LASIX [Concomitant]
     Active Substance: FUROSEMIDE
  2. IMBRUVICA [Suspect]
     Active Substance: IBRUTINIB
     Indication: PRODUCT USED FOR UNKNOWN INDICATION
     Dosage: 140 MG, QOD 140 MG, QOD MONDAY,WEDNESDAY AND FRIDAY
     Route: 048
     Dates: start: 20160308, end: 20180426
  3. RANITIDINE. [Concomitant]
     Active Substance: RANITIDINE
  4. NIACIN. [Concomitant]
     Active Substance: NIACIN
  5. ATORVASTATIN [Concomitant]
     Active Substance: ATORVASTATIN
  6. IMBRUVICA [Suspect]
     Active Substance: IBRUTINIB
     Indication: PRODUCT USED FOR UNKNOWN INDICATION
     Dosage: 140 MG, QOD MONDAY,WEDNESDAY AND FRIDAY
     Route: 048
     Dates: start: 20180427
  7. METOPROLOL. [Concomitant]
     Active Substance: METOPROLOL
  8. TAMSULOSIN [Concomitant]
     Active Substance: TAMSULOSIN
  9. MULTIVITAMINS [Concomitant]
     Active Substance: VITAMINS

REACTIONS (3)
  - Off label use [Unknown]
  - Inappropriate schedule of product administration [Unknown]
  - Incorrect dose administered [Unknown]

NARRATIVE: CASE EVENT DATE: 20160308
